FAERS Safety Report 16232775 (Version 1)
Quarter: 2019Q2

REPORT INFORMATION
  Report Type: Spontaneous
  Country: DE (occurrence: DE)
  Receive Date: 20190424
  Receipt Date: 20190424
  Transmission Date: 20190711
  Serious: Yes (Life-Threatening)
  Sender: FDA-Public Use
  Company Number: DE-AMGEN-DEUSP2019063100

PATIENT
  Age: 67 Year
  Sex: Female
  Weight: 48 kg

DRUGS (20)
  1. VECTIBIX [Suspect]
     Active Substance: PANITUMUMAB
     Indication: COLORECTAL CANCER METASTATIC
     Dosage: 288 MILLIGRAM
     Route: 042
  2. VECTIBIX [Suspect]
     Active Substance: PANITUMUMAB
     Dosage: 270 MILLIGRAM
     Route: 042
  3. FLUOROURACIL. [Suspect]
     Active Substance: FLUOROURACIL
     Indication: COLORECTAL CANCER METASTATIC
     Dosage: 381 MILLIGRAM
     Route: 042
  4. FLUOROURACIL. [Suspect]
     Active Substance: FLUOROURACIL
     Dosage: 2217 MILLIGRAM, UNK
     Route: 042
  5. ATROPINE SULFATE. [Concomitant]
     Active Substance: ATROPINE SULFATE
     Indication: MUSCLE SPASMS
     Dosage: 0.25 MILLIGRAM
     Route: 058
  6. DOXYCYCLINE HYDROCHLORIDE [Concomitant]
     Active Substance: DOXYCYCLINE HYDROCHLORIDE
     Indication: RASH
     Dosage: 50 MILLIGRAM, QD
     Route: 048
     Dates: start: 20180620
  7. BICANORM [Concomitant]
     Active Substance: SODIUM BICARBONATE
     Indication: NEPHROPATHY
     Dosage: 5 MILLIGRAM, QD
     Route: 048
     Dates: start: 20000101
  8. FLUOROURACIL. [Suspect]
     Active Substance: FLUOROURACIL
     Dosage: 2289 MILLIGRAM
     Route: 042
  9. FLUOROURACIL. [Suspect]
     Active Substance: FLUOROURACIL
     Dosage: 369 MILLIGRAM, UNK
     Route: 042
  10. ONIVYDE [Suspect]
     Active Substance: IRINOTECAN HYDROCHLORIDE
     Indication: OFF LABEL USE
     Dosage: 171 MILLIGRAM, UNK
     Route: 065
  11. EMEND [Concomitant]
     Active Substance: APREPITANT
     Indication: NAUSEA
     Dosage: 125 MILLIGRAM
     Route: 048
  12. CALCIUM ACETATE. [Concomitant]
     Active Substance: CALCIUM ACETATE
     Indication: NEPHROPATHY
     Dosage: 500 MILLIGRAM, QID
     Route: 048
     Dates: start: 20000101
  13. VECTIBIX [Suspect]
     Active Substance: PANITUMUMAB
     Dosage: 288 MILLIGRAM
     Route: 042
  14. ONIVYDE [Suspect]
     Active Substance: IRINOTECAN HYDROCHLORIDE
     Indication: COLORECTAL CANCER METASTATIC
     Dosage: 166 MILLIGRAM, UNK
     Route: 065
  15. FOLINIC ACID [CALCIUM FOLINATE] [Suspect]
     Active Substance: LEUCOVORIN CALCIUM
     Indication: COLORECTAL CANCER METASTATIC
     Dosage: 369 MILLIGRAM, UNK
     Route: 065
  16. FOLINIC ACID [CALCIUM FOLINATE] [Suspect]
     Active Substance: LEUCOVORIN CALCIUM
     Dosage: 381 MILLIGRAM, UNK
     Route: 065
  17. DEXA [Concomitant]
     Indication: NAUSEA
     Dosage: 8 MILLILITER
     Route: 042
  18. LOPERAMIDE HYDROCHLORIDE. [Concomitant]
     Active Substance: LOPERAMIDE HYDROCHLORIDE
     Indication: DIARRHOEA
     Dosage: 10 MILLIGRAM, AS NECESSARY
     Route: 048
  19. DOXYDERMA [Concomitant]
     Indication: RASH
     Dosage: UNK UNK, AS NECESSARY (2.5 MG)
     Route: 061
  20. ONDANSETRON HYDROCHLORIDE. [Concomitant]
     Active Substance: ONDANSETRON HYDROCHLORIDE
     Indication: NAUSEA
     Dosage: 8 MILLIGRAM
     Route: 042

REACTIONS (1)
  - Mental impairment [Not Recovered/Not Resolved]

NARRATIVE: CASE EVENT DATE: 20180924
